FAERS Safety Report 22620496 (Version 1)
Quarter: 2023Q2

REPORT INFORMATION
  Report Type: Spontaneous
  Country: US (occurrence: US)
  Receive Date: 20230620
  Receipt Date: 20230620
  Transmission Date: 20230722
  Serious: Yes (Death)
  Sender: FDA-Public Use
  Company Number: US-MYLANLABS-2023M1064813

PATIENT
  Sex: Male
  Weight: 68.95 kg

DRUGS (16)
  1. SILDENAFIL [Suspect]
     Active Substance: SILDENAFIL
     Indication: Product used for unknown indication
     Dosage: 1 DOSAGE FORM, QD
     Route: 048
  2. VYNDAMAX [Concomitant]
     Active Substance: TAFAMIDIS
     Dosage: 61 MILLIGRAM ON
     Route: 048
     Dates: start: 201906
  3. TYLENOL [Concomitant]
     Active Substance: ACETAMINOPHEN
     Indication: Pain
     Dosage: UNK
     Route: 065
  4. ELIQUIS [Concomitant]
     Active Substance: APIXABAN
     Dosage: 2.5 MILLIGRAM, BID
     Route: 048
     Dates: start: 202109
  5. BUMEX [Concomitant]
     Active Substance: BUMETANIDE
     Dosage: 1 MILLIGRAM
     Route: 042
  6. FARXIGA [Concomitant]
     Active Substance: DAPAGLIFLOZIN PROPANEDIOL
     Dosage: 5 MILLIGRAM, QD
     Route: 048
     Dates: start: 200909
  7. BENADRYL [Concomitant]
     Active Substance: DIPHENHYDRAMINE HYDROCHLORIDE
     Dosage: 50 MILLIGRAM
     Route: 042
  8. DUONEB [Concomitant]
     Active Substance: ALBUTEROL SULFATE\IPRATROPIUM BROMIDE
     Dosage: UNK AEROSOL
     Route: 065
  9. LEXAPRO [Concomitant]
     Active Substance: ESCITALOPRAM OXALATE
     Dosage: 10 MILLIGRAM, QD
     Route: 048
  10. LIDODERM [Concomitant]
     Active Substance: LIDOCAINE
     Dosage: UNK 1 PATCH APPLY TOPICALLY
     Route: 061
  11. SOLU-MEDROL [Concomitant]
     Active Substance: METHYLPREDNISOLONE SODIUM SUCCINATE
     Dosage: 125 MILLIGRAM
     Route: 042
  12. NITROGLYCERIN [Concomitant]
     Active Substance: NITROGLYCERIN
     Dosage: UNK 1 INCH APPLY TOPICALLY Q6H
     Route: 061
  13. ROXICODONE [Concomitant]
     Active Substance: OXYCODONE HYDROCHLORIDE
     Indication: Pain
     Dosage: UNK 5 TO 10 MG PO Q4H PRN FOR PAIN - SEVERE
     Route: 065
  14. RACEPINEPHRINE [Concomitant]
     Active Substance: RACEPINEPHRINE
     Dosage: 0.5 MILLILITER
     Route: 065
  15. DICLOFENAC SODIUM [Concomitant]
     Active Substance: DICLOFENAC SODIUM
     Dosage: UNK TAKE ONE TABLET BY MOUTH TWO TIMES A DAY
     Route: 048
  16. FUROSEMIDE [Concomitant]
     Active Substance: FUROSEMIDE
     Dosage: 1 DOSAGE FORM, QD
     Route: 048

REACTIONS (1)
  - Acute respiratory failure [Fatal]
